FAERS Safety Report 21669109 (Version 1)
Quarter: 2022Q4

REPORT INFORMATION
  Report Type: Spontaneous
  Country: US (occurrence: None)
  Receive Date: 20221130
  Receipt Date: 20221130
  Transmission Date: 20230113
  Serious: Yes (Other)
  Sender: FDA-Public Use
  Company Number: None

PATIENT
  Sex: Female

DRUGS (13)
  1. MYCOPHENOLIC ACID [Suspect]
     Active Substance: MYCOPHENOLIC ACID
     Indication: Breast cancer
     Route: 048
     Dates: start: 20171027
  2. ALBUTEROL AER HFA [Concomitant]
  3. ALBUTEROL NEB [Concomitant]
  4. AZITHROMYCIN TAB [Concomitant]
  5. METHYLPRED TAB [Concomitant]
  6. MYCOPHENOLAT TAB [Concomitant]
  7. NIFEDIPINE [Concomitant]
     Active Substance: NIFEDIPINE
  8. OFEV CAP [Concomitant]
  9. OFEV CAP [Concomitant]
  10. OMEPRAZOLE SODIUM [Concomitant]
     Active Substance: OMEPRAZOLE SODIUM
  11. PREDNISONE [Concomitant]
     Active Substance: PREDNISONE
  12. SIMVASTATIN [Concomitant]
     Active Substance: SIMVASTATIN
  13. VITAMIN D CAP [Concomitant]

REACTIONS (1)
  - Breast cancer [None]
